FAERS Safety Report 5971483-0 (Version None)
Quarter: 2008Q4

REPORT INFORMATION
  Report Type: 
  Country: None (occurrence: None)
  Receive Date: 20081201
  Receipt Date: 20081126
  Transmission Date: 20090506
  Serious: Yes (Other)
  Sender: FDA-Public Use
  Company Number: CH-JNJFOC-20081103669

PATIENT
  Sex: Male

DRUGS (2)
  1. REMICADE [Suspect]
     Indication: SPONDYLITIS
     Dosage: RECEIVED A TOTAL OF 3 INFUSIONS
     Route: 042
  2. TAVEGYL [Concomitant]
     Indication: PREMEDICATION

REACTIONS (1)
  - DISTURBANCE IN ATTENTION [None]
